FAERS Safety Report 10277240 (Version 1)
Quarter: 2014Q3

REPORT INFORMATION
  Report Type: Spontaneous
  Country: US (occurrence: US)
  Receive Date: 20140703
  Receipt Date: 20140703
  Transmission Date: 20150326
  Serious: Yes (Other)
  Sender: FDA-Public Use
  Company Number: US-PFIZER INC-2014180131

PATIENT
  Age: 75 Year
  Sex: Female
  Weight: 81.6 kg

DRUGS (4)
  1. ZOLOFT [Concomitant]
     Active Substance: SERTRALINE HYDROCHLORIDE
     Dosage: 100 MG, 2X/DAY
  2. BUPROPION [Concomitant]
     Active Substance: BUPROPION
     Dosage: 150 MG, UNK
  3. TRIAMTERENE AND HYDROCHLOROTHIZIDE [Concomitant]
     Indication: HYPERTENSION
     Dosage: UNK
  4. GABAPENTIN. [Suspect]
     Active Substance: GABAPENTIN
     Dosage: UNK

REACTIONS (3)
  - Hair disorder [Unknown]
  - Mental impairment [Unknown]
  - Dizziness [Unknown]
